FAERS Safety Report 9812107 (Version 1)
Quarter: 2014Q1

REPORT INFORMATION
  Report Type: Spontaneous
  Country: US (occurrence: US)
  Receive Date: 20140111
  Receipt Date: 20140111
  Transmission Date: 20141002
  Serious: No
  Sender: FDA-Public Use
  Company Number: US-009507513-1401USA003725

PATIENT
  Age: 36 Year
  Sex: Female

DRUGS (1)
  1. NUVARING [Suspect]
     Indication: CONTRACEPTION
     Dosage: THERAPY STARTED NUMBER OF YEARS AGO
     Route: 067

REACTIONS (3)
  - Unintended pregnancy [Unknown]
  - Menstruation delayed [Unknown]
  - Malaise [Unknown]
